FAERS Safety Report 26201133 (Version 1)
Quarter: 2025Q4

REPORT INFORMATION
  Report Type: Spontaneous
  Country: TW (occurrence: TW)
  Receive Date: 20251226
  Receipt Date: 20251226
  Transmission Date: 20260117
  Serious: Yes (Other)
  Sender: ROCHE
  Company Number: TW-ROCHE-10000462044

PATIENT
  Age: 74 Year
  Sex: Male

DRUGS (5)
  1. ATEZOLIZUMAB [Suspect]
     Active Substance: ATEZOLIZUMAB
     Indication: Hepatocellular carcinoma
     Dosage: UNKNOWN DOSE
  2. ATEZOLIZUMAB [Suspect]
     Active Substance: ATEZOLIZUMAB
  3. ATEZOLIZUMAB [Suspect]
     Active Substance: ATEZOLIZUMAB
  4. BEVACIZUMAB [Suspect]
     Active Substance: BEVACIZUMAB
     Indication: Hepatocellular carcinoma
     Dosage: UNKNOWN DOSE
  5. BEVACIZUMAB [Suspect]
     Active Substance: BEVACIZUMAB

REACTIONS (7)
  - Hepatic function abnormal [Unknown]
  - Oesophageal varices haemorrhage [Unknown]
  - Hydrothorax [Unknown]
  - Ascites [Unknown]
  - Encephalopathy [Unknown]
  - Neoplasm [Unknown]
  - Hepatocellular carcinoma [Unknown]
